FAERS Safety Report 5981755-1 (Version None)
Quarter: 2008Q4

REPORT INFORMATION
  Report Type: 
  Country: None (occurrence: None)
  Receive Date: 20081205
  Receipt Date: 20081202
  Transmission Date: 20090506
  Serious: Yes (Hospitalization)
  Sender: FDA-Public Use
  Company Number: US-KINGPHARMUSA00001-K200801362

PATIENT
  Age: 77 Year
  Sex: Female

DRUGS (7)
  1. ALTACE [Suspect]
     Indication: HYPERTENSION
     Dosage: 5 MG, BID
     Route: 048
     Dates: start: 20080906, end: 20080930
  2. ALTACE [Suspect]
     Dosage: 2.5 MG, BID
     Dates: start: 20080604, end: 20080905
  3. PLAVIX [Concomitant]
     Dosage: UNK
     Route: 048
  4. METFORMIN HCL [Concomitant]
     Dosage: UNK
  5. OMEPRAZOLE [Concomitant]
     Dosage: UNK
  6. TEMESTA                            /00273201/ [Concomitant]
  7. TAHOR [Concomitant]
     Dosage: UNK

REACTIONS (3)
  - DRUG INEFFECTIVE [None]
  - GLOSSITIS [None]
  - ORAL PAIN [None]
